FAERS Safety Report 9429005 (Version 1)
Quarter: 2013Q3

REPORT INFORMATION
  Report Type: Spontaneous
  Country: US (occurrence: US)
  Receive Date: 20130730
  Receipt Date: 20130730
  Transmission Date: 20140515
  Serious: Yes (Other)
  Sender: FDA-Public Use
  Company Number: US-PFIZER INC-2013219270

PATIENT
  Sex: Male

DRUGS (1)
  1. EFFEXOR XR [Suspect]
     Dosage: UNK
     Dates: end: 2013

REACTIONS (3)
  - Panic attack [Unknown]
  - Aphagia [Unknown]
  - Insomnia [Unknown]
